FAERS Safety Report 20659533 (Version 1)
Quarter: 2022Q1

REPORT INFORMATION
  Report Type: Spontaneous
  Country: US (occurrence: US)
  Receive Date: 20220331
  Receipt Date: 20220331
  Transmission Date: 20220424
  Serious: No
  Sender: FDA-Public Use
  Company Number: US-PFIZER INC-202100969750

PATIENT
  Age: 8 Year
  Sex: Male

DRUGS (3)
  1. EUCRISA [Suspect]
     Active Substance: CRISABOROLE
     Indication: Dermatitis atopic
     Dosage: 2X/DAY (APPLY TO AFFECTED AREA)
  2. EUCRISA [Suspect]
     Active Substance: CRISABOROLE
     Indication: Dermatitis allergic
  3. EUCRISA [Suspect]
     Active Substance: CRISABOROLE
     Indication: Urticaria

REACTIONS (1)
  - Dermatitis atopic [Unknown]
